FAERS Safety Report 3254528 (Version 2)
Quarter: 2020Q3

REPORT INFORMATION
  Report Type: Spontaneous
  Country: US (occurrence: None)
  Receive Date: 19990415
  Receipt Date: 19990715
  Transmission Date: 20201105
  Serious: Yes (Life-Threatening, Hospitalization)
  Sender: FDA-Public Use
  Company Number: 9905522

PATIENT
  Age: 56 Year
  Sex: Male

DRUGS (10)
  1. FAMOTIDINE. [Concomitant]
     Active Substance: FAMOTIDINE
  2. UNKNOWN GENERAL ANESTHETICS [Concomitant]
  3. MIDAZOLAM HYDROCHLORIDE. [Concomitant]
     Active Substance: MIDAZOLAM HYDROCHLORIDE
  4. PLASMANATE [Concomitant]
     Active Substance: ALBUMIN (HUMAN)\PLASMA PROTEIN FRACTION (HUMAN)
  5. DOPAMINE [Concomitant]
     Active Substance: DOPAMINE HYDROCHLORIDE
  6. MORPHINE [Concomitant]
     Active Substance: MORPHINE
  7. ALATROFLOXACIN MESYLATE. [Suspect]
     Active Substance: ALATROFLOXACIN MESYLATE
     Indication: PROPHYLAXIS
     Dosage: 300.00 MG TOTAL, DAILY INTRAVENOUS
     Route: 042
     Dates: start: 19990105, end: 19990105
  8. DIGOXIN. [Concomitant]
     Active Substance: DIGOXIN
  9. EPINEPHRINE. [Concomitant]
     Active Substance: EPINEPHRINE
  10. ZOSYN [Concomitant]
     Active Substance: PIPERACILLIN SODIUM\TAZOBACTAM SODIUM

REACTIONS (2)
  - Angiopathy [None]
  - Shock [None]

NARRATIVE: CASE EVENT DATE: 19990105
